FAERS Safety Report 24991133 (Version 1)
Quarter: 2025Q1

REPORT INFORMATION
  Report Type: Spontaneous
  Country: US (occurrence: None)
  Receive Date: 20250220
  Receipt Date: 20250220
  Transmission Date: 20250408
  Serious: Yes (Hospitalization)
  Sender: FDA-CTU
  Company Number: None

PATIENT
  Sex: Female

DRUGS (4)
  1. OPSUMIT [Suspect]
     Active Substance: MACITENTAN
     Indication: Pulmonary arterial hypertension
     Dosage: FREQUENCY : DAILY;?
     Route: 048
     Dates: start: 202408
  2. METOPROLOL [Concomitant]
     Active Substance: METOPROLOL
  3. TADI\LAFIL [Concomitant]
  4. ADEMPAS [Concomitant]
     Active Substance: RIOCIGUAT

REACTIONS (6)
  - Hypotension [None]
  - Influenza [None]
  - Loss of consciousness [None]
  - Tachycardia [None]
  - Dizziness [None]
  - Blood pressure fluctuation [None]
